FAERS Safety Report 16069744 (Version 6)
Quarter: 2022Q2

REPORT INFORMATION
  Report Type: Other
  Country: CA (occurrence: CA)
  Receive Date: 20190314
  Receipt Date: 20220414
  Transmission Date: 20220720
  Serious: Yes (Other)
  Sender: FDA-Public Use
  Company Number: CA-APOTEX-2019AP009139

PATIENT
  Sex: Female

DRUGS (40)
  1. CLOZAPINE [Interacting]
     Active Substance: CLOZAPINE
     Indication: Product used for unknown indication
     Dosage: 1 DF, QD (200 MG)
     Route: 048
     Dates: start: 20190228
  2. CLOZAPINE [Interacting]
     Active Substance: CLOZAPINE
     Dosage: 3 DF, Q.H.S. (20 MG)
     Route: 065
     Dates: start: 20190228
  3. CLOZAPINE [Interacting]
     Active Substance: CLOZAPINE
     Dosage: 3 DOSAGE FORM, QD
     Route: 048
  4. CLOZAPINE [Interacting]
     Active Substance: CLOZAPINE
     Dosage: UNK
     Route: 065
  5. OLANZAPINE [Interacting]
     Active Substance: OLANZAPINE
     Indication: Mood altered
     Dosage: 1 DF, BID (5 MG)
     Route: 065
     Dates: start: 20190228
  6. OLANZAPINE [Interacting]
     Active Substance: OLANZAPINE
     Dosage: 1 TABLET ONCE DAILY AS NEEDED (5 MG)
     Route: 065
     Dates: start: 20190215
  7. OLANZAPINE [Interacting]
     Active Substance: OLANZAPINE
     Dosage: 1 DF, BID (2.5 MG)
     Route: 065
     Dates: start: 20190228
  8. OLANZAPINE [Interacting]
     Active Substance: OLANZAPINE
     Dosage: UNK, QD
     Route: 065
  9. OLANZAPINE [Interacting]
     Active Substance: OLANZAPINE
     Dosage: 1 DOSAGE FORM, QD
     Route: 065
  10. OLANZAPINE [Interacting]
     Active Substance: OLANZAPINE
     Dosage: 2 DOSAGE FORM, QD
     Route: 065
  11. DIVALPROEX SODIUM [Interacting]
     Active Substance: DIVALPROEX SODIUM
     Indication: Product used for unknown indication
     Dosage: 1 DF, BID
     Route: 065
     Dates: start: 20190228
  12. DIVALPROEX SODIUM [Interacting]
     Active Substance: DIVALPROEX SODIUM
     Dosage: 2 DOSAGE FORM, QD
     Route: 065
  13. DIVALPROEX SODIUM [Interacting]
     Active Substance: DIVALPROEX SODIUM
     Dosage: UNK
     Route: 065
  14. DIVALPROEX SODIUM [Interacting]
     Active Substance: DIVALPROEX SODIUM
     Dosage: UNK UNK, BID
     Route: 065
  15. RANITIDINE [Interacting]
     Active Substance: RANITIDINE
     Indication: Product used for unknown indication
     Dosage: 1 DF, BID
     Route: 065
     Dates: start: 20190228
  16. RANITIDINE [Interacting]
     Active Substance: RANITIDINE
     Dosage: 150 MILLIGRAM, BID
     Route: 065
  17. RANITIDINE [Interacting]
     Active Substance: RANITIDINE
     Dosage: 2 DOSAGE FORM, QD
     Route: 065
  18. ZOPICLONE [Interacting]
     Active Substance: ZOPICLONE
     Indication: Insomnia
     Dosage: 1 DOSAGE FORM, QD
     Route: 065
  19. AMLODIPINE [Interacting]
     Active Substance: AMLODIPINE BESYLATE
     Indication: Product used for unknown indication
     Dosage: 1 DOSAGE FORM, QD
     Route: 065
     Dates: start: 20190228
  20. ARIPIPRAZOLE [Interacting]
     Active Substance: ARIPIPRAZOLE
     Indication: Product used for unknown indication
     Dosage: UNK
     Route: 065
  21. ACETAMINOPHEN\CAFFEINE [Interacting]
     Active Substance: ACETAMINOPHEN\CAFFEINE
     Indication: Pyrexia
     Dosage: 2 DOSAGE FORM
     Route: 065
  22. ACETAMINOPHEN\CAFFEINE [Interacting]
     Active Substance: ACETAMINOPHEN\CAFFEINE
     Indication: Pain
     Dosage: 3 DOSAGE FORM
     Route: 065
  23. ACETAMINOPHEN\CAFFEINE [Interacting]
     Active Substance: ACETAMINOPHEN\CAFFEINE
     Dosage: UNK
     Route: 065
  24. PREMARIN [Interacting]
     Active Substance: ESTROGENS, CONJUGATED
     Indication: Product used for unknown indication
     Dosage: 0.5 G, TOPICALLY TO VAGINAL OPENING AND URETHRAL MEATUS TWICW WEEKLY
     Route: 061
     Dates: start: 20190228
  25. BREXPIPRAZOLE [Interacting]
     Active Substance: BREXPIPRAZOLE
     Indication: Product used for unknown indication
     Route: 065
  26. CHOLECALCIFEROL [Interacting]
     Active Substance: CHOLECALCIFEROL
     Indication: Product used for unknown indication
     Dosage: 1 DF, ONCE A WEEK (SUNDAY)
     Route: 065
     Dates: start: 20190228
  27. LEVOTHYROXINE SODIUM [Interacting]
     Active Substance: LEVOTHYROXINE SODIUM
     Indication: Product used for unknown indication
     Dosage: 1 DF, DAILY
     Route: 065
     Dates: start: 20190228
  28. ESTRADIOL [Interacting]
     Active Substance: ESTRADIOL
     Indication: Product used for unknown indication
     Dosage: 1 DF, WITH APPLICATOR INTO THE VAGINA TWICW PER WEEK (MON, THUR)
     Route: 067
     Dates: start: 20190228
  29. ACETAMINOPHEN [Interacting]
     Active Substance: ACETAMINOPHEN
     Indication: Pain
     Dosage: 2 DF, EVERY 4 HOURS AS NEEDED
     Route: 065
     Dates: start: 20190226
  30. ACETAMINOPHEN [Interacting]
     Active Substance: ACETAMINOPHEN
     Indication: Pyrexia
  31. CLOTRIMAZOLE [Interacting]
     Active Substance: CLOTRIMAZOLE
     Indication: Rash
     Dosage: APPLY TO AFFECTED AREA TWICE A DAY
     Route: 065
     Dates: start: 20181124
  32. ZOPICLONE [Interacting]
     Active Substance: ZOPICLONE
     Indication: Insomnia
     Dosage: 1 DF, ONCE A DAILY AT BEDTIME AS NEEDED
     Route: 065
     Dates: start: 20181029
  33. FLUVIRAL [Interacting]
     Active Substance: INFLUENZA VIRUS VACCINE
     Indication: Product used for unknown indication
     Dosage: UNK
     Route: 065
     Dates: start: 20181005
  34. ALUMINUM HYDROXIDE\MAGNESIUM HYDROXIDE [Interacting]
     Active Substance: ALUMINUM HYDROXIDE\MAGNESIUM HYDROXIDE
     Indication: Abdominal discomfort
     Dosage: 30 ML, EVEY 4 HOURS AS NEEDED
     Route: 048
     Dates: start: 20180831
  35. INFLUENZA VIRUS VACCINE [Interacting]
     Active Substance: INFLUENZA VIRUS VACCINE
     Indication: Product used for unknown indication
     Dosage: UNK
     Route: 065
  36. REXULTI [Interacting]
     Active Substance: BREXPIPRAZOLE
     Indication: Product used for unknown indication
     Dosage: UNK
     Route: 065
  37. ALUMINUM HYDROXIDE [Interacting]
     Active Substance: ALUMINUM HYDROXIDE
     Indication: Abdominal discomfort
     Dosage: 30 MILLILITER
     Route: 048
  38. CONJUGATED ESTROGENS [Interacting]
     Active Substance: ESTROGENS, CONJUGATED
     Indication: Product used for unknown indication
     Dosage: UNK
     Route: 061
  39. PREMARIN WITH METHYLTESTOSTERONE [Interacting]
     Active Substance: ESTROGENS, CONJUGATED\METHYLTESTOSTERONE
     Indication: Product used for unknown indication
     Dosage: 5 GRAM
     Route: 065
  40. ALUMINUM HYDROXIDE\DIMETHICONE\MAGNESIUM HYDROXIDE [Interacting]
     Active Substance: ALUMINUM HYDROXIDE\DIMETHICONE\MAGNESIUM HYDROXIDE
     Indication: Abdominal discomfort
     Dosage: UNK
     Route: 065

REACTIONS (4)
  - Schizoaffective disorder [Unknown]
  - Drug level increased [Unknown]
  - Drug interaction [Unknown]
  - Electrocardiogram QT prolonged [Unknown]
